FAERS Safety Report 25761735 (Version 2)
Quarter: 2025Q3

REPORT INFORMATION
  Report Type: Spontaneous
  Country: US (occurrence: US)
  Receive Date: 20250904
  Receipt Date: 20250922
  Transmission Date: 20251020
  Serious: Yes (Hospitalization)
  Sender: TEVA
  Company Number: US-TEVA-VS-3366883

PATIENT
  Age: 71 Year
  Sex: Female

DRUGS (8)
  1. TREPROSTINIL [Interacting]
     Active Substance: TREPROSTINIL
     Indication: Pulmonary arterial hypertension
     Dosage: DOSAGE: 214 NG/KG
     Route: 042
  2. TREPROSTINIL [Interacting]
     Active Substance: TREPROSTINIL
     Indication: Pulmonary arterial hypertension
     Route: 042
  3. TREPROSTINIL [Interacting]
     Active Substance: TREPROSTINIL
     Indication: Pulmonary arterial hypertension
     Dosage: DECREASED AGGRESSIVELY TO 50 NG/KG/MIN
     Route: 042
  4. TREPROSTINIL [Interacting]
     Active Substance: TREPROSTINIL
     Indication: Pulmonary arterial hypertension
     Dosage: INCREASED TO 58 NG/KG/MIN
     Route: 042
  5. TREPROSTINIL [Interacting]
     Active Substance: TREPROSTINIL
     Indication: Pulmonary arterial hypertension
     Dosage: GRADUALLY INCREASED AND SHE RECEIVED HIGH DOSE 242 NG/KG/MIN
     Route: 042
  6. SOTATERCEPT [Interacting]
     Active Substance: SOTATERCEPT
     Indication: Pulmonary arterial hypertension
     Route: 058
  7. MACITENTAN [Concomitant]
     Active Substance: MACITENTAN
     Indication: Pulmonary arterial hypertension
     Route: 065
  8. TADALAFIL [Concomitant]
     Active Substance: TADALAFIL
     Indication: Pulmonary arterial hypertension
     Route: 048

REACTIONS (17)
  - Drug interaction [Unknown]
  - Overdose [Unknown]
  - Drug tolerance [Unknown]
  - Cardiac failure high output [Recovering/Resolving]
  - Unmasking of previously unidentified disease [Recovering/Resolving]
  - Vomiting [Recovering/Resolving]
  - Nausea [Recovering/Resolving]
  - Headache [Recovering/Resolving]
  - Diarrhoea [Recovering/Resolving]
  - Flushing [Recovering/Resolving]
  - Pericardial effusion [Recovering/Resolving]
  - Weight decreased [Recovering/Resolving]
  - Hypoxia [Recovering/Resolving]
  - Fatigue [Recovering/Resolving]
  - Cardiorenal syndrome [Recovering/Resolving]
  - Dyspnoea [Recovering/Resolving]
  - Oedema peripheral [Recovering/Resolving]
